FAERS Safety Report 7374477-6 (Version None)
Quarter: 2011Q1

REPORT INFORMATION
  Report Type: 
  Country: None (occurrence: None)
  Receive Date: 20110325
  Receipt Date: 20110120
  Transmission Date: 20110831
  Serious: No
  Sender: FDA-Public Use
  Company Number: US-MYLANLABS-2011S1000531

PATIENT
  Age: 64 Year
  Sex: Male
  Weight: 68.04 kg

DRUGS (5)
  1. FENTANYL-100 [Suspect]
     Indication: PAIN
     Dosage: CHANGED Q72H
     Route: 062
     Dates: start: 20090101, end: 20110101
  2. CYMBALTA [Concomitant]
     Dates: start: 20100121
  3. LIDODERM [Concomitant]
     Dates: start: 20100602
  4. OXYCODONE [Concomitant]
  5. TOPAMAX [Concomitant]
     Dates: start: 20100602

REACTIONS (3)
  - PAIN [None]
  - DRUG INEFFECTIVE [None]
  - DRUG WITHDRAWAL SYNDROME [None]
